FAERS Safety Report 7536779-X (Version None)
Quarter: 2011Q2

REPORT INFORMATION
  Report Type: 
  Country: None (occurrence: None)
  Receive Date: 20110609
  Receipt Date: 20110606
  Transmission Date: 20111010
  Serious: Yes (Life-Threatening, Hospitalization)
  Sender: FDA-Public Use
  Company Number: FR-ROCHE-765955

PATIENT
  Sex: Female
  Weight: 56 kg

DRUGS (1)
  1. HERCEPTIN [Suspect]
     Route: 042
     Dates: start: 20030108

REACTIONS (1)
  - CHOLANGITIS SCLEROSING [None]
